FAERS Safety Report 19900985 (Version 1)
Quarter: 2021Q3

REPORT INFORMATION
  Report Type: Spontaneous
  Country: US (occurrence: US)
  Receive Date: 20210930
  Receipt Date: 20210930
  Transmission Date: 20211014
  Serious: Yes (Other)
  Sender: FDA-Public Use
  Company Number: None

PATIENT
  Age: 33 Year
  Sex: Female
  Weight: 89.36 kg

DRUGS (1)
  1. INFED [Suspect]
     Active Substance: IRON DEXTRAN
     Route: 042

REACTIONS (2)
  - Rash [None]
  - Infusion related reaction [None]

NARRATIVE: CASE EVENT DATE: 20210915
